FAERS Safety Report 7453992-0 (Version None)
Quarter: 2011Q2

REPORT INFORMATION
  Report Type: 
  Country: None (occurrence: None)
  Receive Date: 20110502
  Receipt Date: 20110114
  Transmission Date: 20111010
  Serious: No
  Sender: FDA-Public Use
  Company Number: US-ASTRAZENECA-2011SE02531

PATIENT
  Age: 49 Year
  Sex: Male

DRUGS (3)
  1. TOPROL-XL [Concomitant]
  2. OTC VITAMINS [Concomitant]
  3. NEXIUM [Suspect]
     Indication: GASTROOESOPHAGEAL REFLUX DISEASE
     Route: 048

REACTIONS (4)
  - GASTROOESOPHAGEAL REFLUX DISEASE [None]
  - DRUG INEFFECTIVE [None]
  - DYSPHAGIA [None]
  - OROPHARYNGEAL DISCOMFORT [None]
